FAERS Safety Report 20163931 (Version 1)
Quarter: 2021Q4

REPORT INFORMATION
  Report Type: Spontaneous
  Country: US (occurrence: US)
  Receive Date: 20211209
  Receipt Date: 20211209
  Transmission Date: 20220303
  Serious: Yes (Other)
  Sender: FDA-Public Use
  Company Number: US-NOVARTISPH-NVSC2021US279042

PATIENT
  Sex: Male

DRUGS (2)
  1. TRILEPTAL [Suspect]
     Active Substance: OXCARBAZEPINE
     Indication: Bipolar disorder
     Dosage: UNK
     Route: 065
     Dates: start: 2006
  2. ABILIFY [Concomitant]
     Active Substance: ARIPIPRAZOLE
     Indication: Product used for unknown indication
     Dosage: UNK
     Route: 065
     Dates: start: 2006

REACTIONS (8)
  - Neuropathy peripheral [Unknown]
  - Neuropathic arthropathy [Unknown]
  - Renal failure [Unknown]
  - Renal impairment [Unknown]
  - End stage renal disease [Unknown]
  - Fatigue [Unknown]
  - Gait inability [Unknown]
  - Lethargy [Unknown]
